FAERS Safety Report 23860467 (Version 3)
Quarter: 2024Q4

REPORT INFORMATION
  Report Type: Report from Study
  Country: US (occurrence: US)
  Receive Date: 20240516
  Receipt Date: 20241114
  Transmission Date: 20250114
  Serious: Yes (Other)
  Sender: ABBVIE
  Company Number: US-ABBVIE-5760112

PATIENT
  Age: 67 Year
  Sex: Male

DRUGS (2)
  1. HUMIRA [Suspect]
     Active Substance: ADALIMUMAB
     Indication: Psoriasis
     Dosage: CITRATE FREE?FORM STRENGTH-40 MILLIGRAM
     Route: 058
     Dates: start: 2012, end: 20220324
  2. CABOMETYX [Suspect]
     Active Substance: CABOZANTINIB S-MALATE
     Indication: Product used for unknown indication
     Route: 065

REACTIONS (8)
  - Hepatic cancer [Recovered/Resolved]
  - Weight decreased [Recovering/Resolving]
  - Cataract [Not Recovered/Not Resolved]
  - Unevaluable event [Unknown]
  - Abdominal pain upper [Recovered/Resolved]
  - Arthritis [Unknown]
  - Feeding disorder [Recovered/Resolved]
  - Renal disorder [Unknown]

NARRATIVE: CASE EVENT DATE: 20220101
